FAERS Safety Report 17669366 (Version 2)
Quarter: 2020Q2

REPORT INFORMATION
  Report Type: Spontaneous
  Country: DE (occurrence: DE)
  Receive Date: 20200415
  Receipt Date: 20200420
  Transmission Date: 20200713
  Serious: Yes (Other)
  Sender: FDA-Public Use
  Company Number: DE-MYLANLABS-2020M1037331

PATIENT
  Age: 74 Year
  Sex: Female

DRUGS (11)
  1. RITUXIMAB. [Suspect]
     Active Substance: RITUXIMAB
     Indication: DIFFUSE LARGE B-CELL LYMPHOMA
     Dosage: 375 MG/SQ. METER, 1 SINGLE COURSE OF R-CHOP
     Route: 065
  2. VINCRISTINE [Suspect]
     Active Substance: VINCRISTINE
     Indication: DIFFUSE LARGE B-CELL LYMPHOMA
     Dosage: MODIFIED R-CHOP REGIMEN ADMINISTERED IN 4-WEEKLY INTERVAL
     Route: 065
  3. DOXORUBICIN [Suspect]
     Active Substance: DOXORUBICIN
     Indication: NEOPLASM PROGRESSION
     Dosage: 6 COURSES IN 4 WEEKLY INTERVALS WITH 50% DOSE REDUCTION
     Route: 065
  4. PREDNISOLONE. [Suspect]
     Active Substance: PREDNISOLONE
     Dosage: MODIFIED R-CHOP REGIMEN ADMINISTERED IN 4-WEEKLY INTERVALS
     Route: 065
  5. ENDOXAN                            /00021102/ [Suspect]
     Active Substance: CYCLOPHOSPHAMIDE
     Indication: DIFFUSE LARGE B-CELL LYMPHOMA
     Dosage: 750 MG/SQ. METER, 1 SINGLE COURSE OF R-CHOP
     Route: 065
  6. PREDNISOLONE. [Suspect]
     Active Substance: PREDNISOLONE
     Indication: NEOPLASM PROGRESSION
     Dosage: 6 COURSES IN 4WEEKLY INTERVAL-50PERCENT DOSE REDUCTION
     Route: 065
  7. RITUXIMAB. [Suspect]
     Active Substance: RITUXIMAB
     Indication: NEOPLASM PROGRESSION
     Dosage: 6 COURSES IN 4 WEEKLY INTERVALS WITH 50% DOSE REDUCTION
     Route: 065
  8. PREDNISOLONE. [Suspect]
     Active Substance: PREDNISOLONE
     Indication: DIFFUSE LARGE B-CELL LYMPHOMA
     Dosage: 100 MG/SQ. METER,1 SINGLE COURSE OF R-CHOP
     Route: 065
  9. DOXORUBICIN [Suspect]
     Active Substance: DOXORUBICIN
     Indication: DIFFUSE LARGE B-CELL LYMPHOMA
     Dosage: 20 MG/SQ. METER, 1 SINGLE COURSE OF R-CHOP
     Route: 065
  10. VINCRISTINE [Suspect]
     Active Substance: VINCRISTINE
     Indication: NEOPLASM PROGRESSION
     Dosage: 1.4 MILLIGRAM/SQ. METER
  11. ENDOXAN                            /00021102/ [Suspect]
     Active Substance: CYCLOPHOSPHAMIDE
     Indication: NEOPLASM PROGRESSION
     Dosage: 6 COURSES IN 4 WEEKLY INTERVALS WITH 50% DOSE REDUCTION
     Route: 065

REACTIONS (13)
  - Infection [Unknown]
  - Cholestasis [Unknown]
  - Pyrexia [Unknown]
  - Therapy partial responder [Unknown]
  - Blood creatinine increased [Unknown]
  - Febrile neutropenia [Unknown]
  - Diarrhoea [Unknown]
  - Thrombosis [Unknown]
  - Anaemia [Unknown]
  - Leukopenia [Unknown]
  - Hyperglycaemia [Unknown]
  - Nausea [Unknown]
  - Agitation [Unknown]
